FAERS Safety Report 14803751 (Version 1)
Quarter: 2018Q2

REPORT INFORMATION
  Report Type: Report from Study
  Country: DE (occurrence: DE)
  Receive Date: 20180425
  Receipt Date: 20180425
  Transmission Date: 20180711
  Serious: Yes (Other)
  Sender: FDA-Public Use
  Company Number: DE-TEVA-2017-DE-836951

PATIENT
  Age: 67 Year
  Sex: Female

DRUGS (5)
  1. COTRIM FORTE [Suspect]
     Active Substance: SULFAMETHOXAZOLE\TRIMETHOPRIM
     Indication: PROPHYLAXIS
     Route: 065
     Dates: start: 20170307
  2. COTRIM FORTE [Suspect]
     Active Substance: SULFAMETHOXAZOLE\TRIMETHOPRIM
     Route: 065
     Dates: start: 20170216, end: 20170217
  3. ACIC /00587301/ [Concomitant]
     Indication: PROPHYLAXIS
     Route: 065
     Dates: start: 20170206
  4. IDELALISIB [Suspect]
     Active Substance: IDELALISIB
     Indication: B-CELL LYMPHOMA
     Dosage: 300 MG, QD
     Route: 048
     Dates: start: 20170206, end: 20170217
  5. IDELALISIB [Suspect]
     Active Substance: IDELALISIB
     Indication: CHRONIC LYMPHOCYTIC LEUKAEMIA

REACTIONS (5)
  - Platelet count decreased [Recovered/Resolved]
  - Blood lactate dehydrogenase decreased [Recovered/Resolved]
  - Blood bilirubin increased [Recovered/Resolved]
  - Stevens-Johnson syndrome [Recovered/Resolved]
  - Dermatitis [Recovered/Resolved]

NARRATIVE: CASE EVENT DATE: 20170216
